FAERS Safety Report 7488286-0 (Version None)
Quarter: 2011Q2

REPORT INFORMATION
  Report Type: 
  Country: None (occurrence: None)
  Receive Date: 20110511
  Receipt Date: 20110427
  Transmission Date: 20111010
  Serious: Yes (Hospitalization)
  Sender: FDA-Public Use
  Company Number: CLO-11-05

PATIENT
  Age: 17 Year
  Sex: Male
  Weight: 63 kg

DRUGS (3)
  1. METHYLPHENIDATE [Concomitant]
  2. ATOMOXETINE [Concomitant]
  3. CLONIDINE [Suspect]
     Indication: INSOMNIA
     Dosage: 0.1MG

REACTIONS (5)
  - PETIT MAL EPILEPSY [None]
  - DEPRESSION [None]
  - IMPULSIVE BEHAVIOUR [None]
  - ATTENTION DEFICIT/HYPERACTIVITY DISORDER [None]
  - OFF LABEL USE [None]
